FAERS Safety Report 10342582 (Version 10)
Quarter: 2015Q2

REPORT INFORMATION
  Report Type: Spontaneous
  Country: IL (occurrence: IL)
  Receive Date: 20140725
  Receipt Date: 20150623
  Transmission Date: 20150821
  Serious: Yes (Hospitalization, Other)
  Sender: FDA-Public Use
  Company Number: IL-PFIZER INC-2014200936

PATIENT
  Age: 68 Year
  Sex: Male

DRUGS (3)
  1. SUTENT [Suspect]
     Active Substance: SUNITINIB MALATE
     Dosage: 50 MG, ALTERNATE DAY
     Route: 048
  2. OMEPRADEX [Concomitant]
     Active Substance: OMEPRAZOLE
  3. SUTENT [Suspect]
     Active Substance: SUNITINIB MALATE
     Indication: RENAL CELL CARCINOMA
     Dosage: 50 MG, ONCE DAILY (2 WEEKS ON/1 WEEK OFF)
     Route: 048
     Dates: start: 20110601

REACTIONS (28)
  - Blood pressure increased [Recovered/Resolved]
  - Arrhythmia [Not Recovered/Not Resolved]
  - Heart rate decreased [Recovered/Resolved]
  - Renal cell carcinoma [Unknown]
  - Hypothyroidism [Not Recovered/Not Resolved]
  - Urine output decreased [Recovered/Resolved]
  - Asthenia [Not Recovered/Not Resolved]
  - Diarrhoea [Not Recovered/Not Resolved]
  - Tooth disorder [Recovered/Resolved]
  - Malaise [Not Recovered/Not Resolved]
  - Blood pressure decreased [Recovered/Resolved]
  - Depressed mood [Not Recovered/Not Resolved]
  - Tooth infection [Recovered/Resolved]
  - Cough [Recovered/Resolved]
  - Dysphonia [Not Recovered/Not Resolved]
  - Decreased appetite [Not Recovered/Not Resolved]
  - Vomiting [Recovered/Resolved]
  - Palmar erythema [Recovered/Resolved]
  - Viral infection [Recovered/Resolved]
  - Loss of consciousness [Recovered/Resolved]
  - Swelling face [Recovering/Resolving]
  - Disease progression [Unknown]
  - Asthenia [Recovering/Resolving]
  - Diarrhoea [Recovered/Resolved]
  - Pain in extremity [Recovered/Resolved]
  - Blood creatinine increased [Not Recovered/Not Resolved]
  - Vitamin D decreased [Unknown]
  - Heart rate irregular [Recovered/Resolved]

NARRATIVE: CASE EVENT DATE: 2014
